FAERS Safety Report 9510791 (Version 3)
Quarter: 2013Q3

REPORT INFORMATION
  Report Type: Spontaneous
  Country: DE (occurrence: DE)
  Receive Date: 20130910
  Receipt Date: 20130916
  Transmission Date: 20140515
  Serious: Yes (Hospitalization, Other)
  Sender: FDA-Public Use
  Company Number: DE-AMGEN-DEUSP2013061227

PATIENT
  Age: 40 Year
  Sex: Female
  Weight: 70 kg

DRUGS (2)
  1. NEULASTA [Suspect]
     Indication: BREAST CANCER
     Dosage: 6 MG, UNK
     Route: 058
     Dates: start: 20130828
  2. TAXOTERE [Concomitant]
     Indication: BREAST CANCER
     Dosage: 179 MG, 21 DAYS
     Route: 042
     Dates: start: 20130827

REACTIONS (8)
  - Diarrhoea [Unknown]
  - General physical health deterioration [Unknown]
  - Pyrexia [Unknown]
  - Device related infection [Unknown]
  - Adjustment disorder with depressed mood [Unknown]
  - Bone pain [Unknown]
  - C-reactive protein increased [Unknown]
  - Leukocytosis [Unknown]
